FAERS Safety Report 8795012 (Version 2)
Quarter: 2015Q1

REPORT INFORMATION
  Report Type: Report from Study
  Country: US (occurrence: US)
  Receive Date: 20120917
  Receipt Date: 20150325
  Transmission Date: 20150721
  Serious: Yes (Death)
  Sender: FDA-Public Use
  Company Number: US-ROCHE-1124900

PATIENT
  Sex: Male

DRUGS (2)
  1. AVASTIN [Suspect]
     Active Substance: BEVACIZUMAB
     Indication: RENAL CANCER
     Dosage: TREATMENT DATES: 12/AUG/2005, 26/AUG/2005, 23/SEP/2005, 07/OCT/2005, 27/OCT/2005, 4/NOV/2005 AND 18/
     Route: 065
     Dates: start: 200508
  2. AVASTIN [Suspect]
     Active Substance: BEVACIZUMAB
     Indication: MALIGNANT URINARY TRACT NEOPLASM

REACTIONS (2)
  - Off label use [Unknown]
  - Death [Fatal]
